FAERS Safety Report 20210009 (Version 1)
Quarter: 2021Q4

REPORT INFORMATION
  Report Type: Spontaneous
  Country: CN (occurrence: CN)
  Receive Date: 20211221
  Receipt Date: 20211221
  Transmission Date: 20220304
  Serious: Yes (Hospitalization)
  Sender: FDA-Public Use
  Company Number: CN-009507513-2112CHN006521

PATIENT
  Age: 53 Year
  Sex: Female
  Weight: 54 kg

DRUGS (2)
  1. JANUMET [Suspect]
     Active Substance: METFORMIN HYDROCHLORIDE\SITAGLIPTIN PHOSPHATE
     Indication: Blood glucose abnormal
     Dosage: 1 TABLET, BID
     Route: 048
     Dates: start: 20210903, end: 20211109
  2. MIGLITOL [Suspect]
     Active Substance: MIGLITOL
     Indication: Blood glucose abnormal
     Dosage: 25 MG, TID
     Route: 048
     Dates: start: 20210903, end: 20211109

REACTIONS (3)
  - Cough [Unknown]
  - Productive cough [Unknown]
  - Constipation [Recovering/Resolving]

NARRATIVE: CASE EVENT DATE: 20211108
